FAERS Safety Report 4846291-4 (Version None)
Quarter: 2005Q4

REPORT INFORMATION
  Report Type: 
  Country: None (occurrence: None)
  Receive Date: 20051206
  Receipt Date: 20051130
  Transmission Date: 20060501
  Serious: Yes (Hospitalization)
  Sender: FDA-Public Use
  Company Number: AU-ROCHE-426624

PATIENT
  Age: 50 Year
  Sex: Male
  Weight: 60 kg

DRUGS (6)
  1. CEFTRIAXONE SODIUM [Suspect]
     Indication: CELLULITIS
     Route: 042
     Dates: start: 20031107, end: 20031111
  2. VANCOMYCIN HYDROCHLORIDE [Suspect]
     Indication: CELLULITIS
     Route: 042
     Dates: start: 20031102, end: 20031111
  3. CLINDAMYCIN HYDROCHLORIDE [Suspect]
     Indication: CELLULITIS
     Route: 042
     Dates: start: 20031101, end: 20031111
  4. FRUSEMIDE [Concomitant]
  5. LOSEC [Concomitant]
  6. DIAMICRON [Concomitant]

REACTIONS (2)
  - PURPURA [None]
  - RASH MACULAR [None]
